FAERS Safety Report 17614982 (Version 1)
Quarter: 2020Q2

REPORT INFORMATION
  Report Type: Spontaneous
  Country: GR (occurrence: GR)
  Receive Date: 20200402
  Receipt Date: 20200402
  Transmission Date: 20200713
  Serious: Yes (Hospitalization)
  Sender: FDA-Public Use
  Company Number: GR-AXELLIA-003064

PATIENT
  Weight: 3 kg

DRUGS (7)
  1. GLUCOSE/GLUCOSE MONOHYDRATE/GLUCOSE OXIDASE [Suspect]
     Active Substance: DEXTROSE
     Indication: PRODUCT USED FOR UNKNOWN INDICATION
     Route: 065
  2. VANCOMYCIN [Suspect]
     Active Substance: VANCOMYCIN
     Indication: PRODUCT USED FOR UNKNOWN INDICATION
     Route: 065
  3. TOBRAMYCIN. [Suspect]
     Active Substance: TOBRAMYCIN
     Indication: PRODUCT USED FOR UNKNOWN INDICATION
     Route: 065
  4. DOPAMINE [Suspect]
     Active Substance: DOPAMINE HYDROCHLORIDE
     Indication: PRODUCT USED FOR UNKNOWN INDICATION
     Route: 065
  5. MEROPENEM. [Suspect]
     Active Substance: MEROPENEM
     Indication: PRODUCT USED FOR UNKNOWN INDICATION
     Route: 065
  6. AMPICILLIN SODIUM SALT/AMPICILLIN TRIHYDRATE [Suspect]
     Active Substance: AMPICILLIN
     Indication: PRODUCT USED FOR UNKNOWN INDICATION
     Route: 065
  7. CEFOTAXIME [Suspect]
     Active Substance: CEFOTAXIME SODIUM
     Indication: PRODUCT USED FOR UNKNOWN INDICATION
     Route: 065

REACTIONS (12)
  - Respiratory depression [Recovered/Resolved]
  - Hepatosplenomegaly [Recovered/Resolved]
  - Hypoacusis [Unknown]
  - Pyrexia [Recovered/Resolved]
  - Hyperbilirubinaemia [Recovered/Resolved]
  - Inflammatory marker increased [Recovered/Resolved]
  - Leukocytosis [Recovered/Resolved]
  - CSF white blood cell count increased [Recovered/Resolved]
  - Sepsis [Recovered/Resolved]
  - Meningitis [Recovered/Resolved]
  - Therapy non-responder [Unknown]
  - Thrombocytopenia [Recovered/Resolved]
